FAERS Safety Report 14775973 (Version 1)
Quarter: 2018Q2

REPORT INFORMATION
  Report Type: Spontaneous
  Country: US (occurrence: US)
  Receive Date: 20180418
  Receipt Date: 20180418
  Transmission Date: 20180711
  Serious: No
  Sender: FDA-Public Use
  Company Number: US-MYLANLABS-2018M1024824

PATIENT
  Sex: Female

DRUGS (1)
  1. FEXOFENADINE HCL TABLETS, USP [Suspect]
     Active Substance: FEXOFENADINE HYDROCHLORIDE
     Indication: PRODUCT USED FOR UNKNOWN INDICATION
     Dosage: 12 HOURS TABLET

REACTIONS (1)
  - Myalgia [Unknown]
